FAERS Safety Report 21897592 (Version 3)
Quarter: 2023Q2

REPORT INFORMATION
  Report Type: Spontaneous
  Country: US (occurrence: US)
  Receive Date: 20230123
  Receipt Date: 20230421
  Transmission Date: 20230722
  Serious: Yes (Hospitalization, Other)
  Sender: FDA-Public Use
  Company Number: US-SA-SAC20230120000899

PATIENT
  Age: 6 Year
  Sex: Male

DRUGS (6)
  1. ELOCTATE [Suspect]
     Active Substance: EFMOROCTOCOG ALFA
     Indication: Factor VIII deficiency
     Dosage: 1000 U, BIW
     Route: 042
     Dates: start: 20210302
  2. ELOCTATE [Suspect]
     Active Substance: EFMOROCTOCOG ALFA
     Indication: Factor VIII deficiency
     Dosage: 1000 U, BIW
     Route: 042
     Dates: start: 20210302
  3. ELOCTATE [Suspect]
     Active Substance: EFMOROCTOCOG ALFA
     Dosage: 1000 UNITS (900-1100) SLOW IV AS NEEDED FOR MODERATE/SEVERE/JOINT BLEEDS
     Route: 042
  4. ELOCTATE [Suspect]
     Active Substance: EFMOROCTOCOG ALFA
     Dosage: 1000 UNITS (900-1100) SLOW IV AS NEEDED FOR MODERATE/SEVERE/JOINT BLEEDS
     Route: 042
  5. ELOCTATE [Suspect]
     Active Substance: EFMOROCTOCOG ALFA
     Dosage: 500 UNITS (450-550) SLOW IV AS NEEDED FOR MILD BREAKTHROUGH BLEEDS
     Route: 041
     Dates: start: 202212
  6. ELOCTATE [Suspect]
     Active Substance: EFMOROCTOCOG ALFA
     Dosage: 500 UNITS (450-550) SLOW IV AS NEEDED FOR MILD BREAKTHROUGH BLEEDS
     Route: 041
     Dates: start: 202212

REACTIONS (4)
  - Haematological infection [Unknown]
  - Device related infection [Unknown]
  - Central venous catheter removal [Unknown]
  - Influenza [Unknown]

NARRATIVE: CASE EVENT DATE: 20230116
